FAERS Safety Report 15879830 (Version 1)
Quarter: 2019Q1

REPORT INFORMATION
  Report Type: Spontaneous
  Country: ZA (occurrence: ZA)
  Receive Date: 20190128
  Receipt Date: 20190128
  Transmission Date: 20190417
  Serious: Yes (Hospitalization)
  Sender: FDA-Public Use
  Company Number: ZA-NOVOPROD-642714

PATIENT
  Age: 86 Year
  Sex: Female

DRUGS (8)
  1. TERBINAFINE MYLAN [Concomitant]
     Active Substance: TERBINAFINE
  2. DORMONOCT [Concomitant]
     Active Substance: LOPRAZOLAM
  3. VAGIFEM [Suspect]
     Active Substance: ESTRADIOL
     Indication: HORMONE REPLACEMENT THERAPY
     Dosage: UNK
     Route: 065
     Dates: start: 201811
  4. EXFORGE [Concomitant]
     Active Substance: AMLODIPINE BESYLATE\VALSARTAN
  5. SPIRACTIN                          /00006201/ [Concomitant]
     Active Substance: SPIRONOLACTONE
  6. ECOTRIN [Concomitant]
     Active Substance: ASPIRIN
  7. INDOBLOK [Concomitant]
     Active Substance: PROPRANOLOL HYDROCHLORIDE
  8. MYLAN FUROSEMIDE [Concomitant]
     Active Substance: FUROSEMIDE

REACTIONS (1)
  - Fall [Unknown]
